FAERS Safety Report 5299632-0 (Version None)
Quarter: 2007Q2

REPORT INFORMATION
  Report Type: 
  Country: None (occurrence: None)
  Receive Date: 20070417
  Receipt Date: 20070412
  Transmission Date: 20071010
  Serious: Yes (Death, Hospitalization)
  Sender: FDA-Public Use
  Company Number: FR-SHR-FR-2007-005341

PATIENT
  Age: 76 Year
  Sex: Male

DRUGS (1)
  1. ULTRAVIST 300 [Suspect]
     Dosage: 40 ML, UNK
     Route: 042
     Dates: start: 20070215, end: 20070215

REACTIONS (8)
  - ANAPHYLACTIC REACTION [None]
  - ANGIOEDEMA [None]
  - CARDIAC ARREST [None]
  - COMA [None]
  - COUGH [None]
  - ERYTHEMA [None]
  - LOSS OF CONSCIOUSNESS [None]
  - THROAT IRRITATION [None]
